FAERS Safety Report 7730767-6 (Version None)
Quarter: 2011Q3

REPORT INFORMATION
  Report Type: 
  Country: None (occurrence: None)
  Receive Date: 20110906
  Receipt Date: 20110824
  Transmission Date: 20111222
  Serious: Yes (Hospitalization)
  Sender: FDA-Public Use
  Company Number: NL-GLAXOSMITHKLINE-B0744718A

PATIENT
  Sex: Female
  Weight: 67 kg

DRUGS (2)
  1. LAPATINIB [Suspect]
     Indication: CERVIX CARCINOMA RECURRENT
     Route: 065
     Dates: start: 20110802
  2. CISPLATIN [Suspect]
     Indication: CERVIX CARCINOMA RECURRENT
     Dosage: 120MG WEEKLY
     Route: 042
     Dates: start: 20110802

REACTIONS (1)
  - BLOOD CREATININE INCREASED [None]
